FAERS Safety Report 16847226 (Version 3)
Quarter: 2019Q4

REPORT INFORMATION
  Report Type: Report from Study
  Country: US (occurrence: US)
  Receive Date: 20190924
  Receipt Date: 20191001
  Transmission Date: 20200122
  Serious: No
  Sender: FDA-Public Use
  Company Number: PHEH2019US039005

PATIENT
  Sex: Male
  Weight: 72.56 kg

DRUGS (1)
  1. ENTRESTO [Suspect]
     Active Substance: SACUBITRIL\VALSARTAN
     Indication: CARDIAC FAILURE
     Dosage: 100 MG (SACUBITRIL 49MG AND VALSARTAN 51MG), BID
     Route: 048

REACTIONS (5)
  - Diarrhoea [Unknown]
  - Balance disorder [Unknown]
  - Weight decreased [Unknown]
  - Anal sphincter atony [Unknown]
  - Pollakiuria [Unknown]
